FAERS Safety Report 6754458-3 (Version None)
Quarter: 2010Q2

REPORT INFORMATION
  Report Type: 
  Country: None (occurrence: None)
  Receive Date: 20100603
  Receipt Date: 20100521
  Transmission Date: 20101027
  Serious: Yes (Disabling)
  Sender: FDA-Public Use
  Company Number: DK-BRACCO-000056

PATIENT
  Sex: Male
  Weight: 85 kg

DRUGS (6)
  1. CONTRAST MEDIA [Suspect]
     Indication: SCAN WITH CONTRAST
     Route: 042
     Dates: start: 20060705, end: 20060705
  2. BISOCOR [Concomitant]
     Indication: HYPERTENSION
     Route: 048
  3. COVERSYL COMP [Concomitant]
     Indication: HYPERTENSION
     Route: 048
  4. FERROUS SULFATE TAB [Concomitant]
     Indication: IRON DEFICIENCY
     Route: 048
  5. PREDNISOLONE [Concomitant]
     Indication: RHEUMATOID ARTHRITIS
     Route: 048
  6. METHOTREXAT [Concomitant]
     Indication: RHEUMATOID ARTHRITIS
     Route: 048

REACTIONS (1)
  - NEPHROGENIC SYSTEMIC FIBROSIS [None]
